FAERS Safety Report 14004920 (Version 2)
Quarter: 2017Q3

REPORT INFORMATION
  Report Type: Spontaneous
  Country: DK (occurrence: DK)
  Receive Date: 20170922
  Receipt Date: 20170927
  Transmission Date: 20171128
  Serious: Yes (Hospitalization, Disabling)
  Sender: FDA-Public Use
  Company Number: DK-PFIZER INC-2017387991

PATIENT
  Age: 68 Year
  Sex: Female

DRUGS (3)
  1. ZARATOR [Suspect]
     Active Substance: ATORVASTATIN CALCIUM
     Indication: HYPERCHOLESTEROLAEMIA
  2. ZARATOR [Suspect]
     Active Substance: ATORVASTATIN CALCIUM
     Indication: DIABETES MELLITUS
     Dosage: UNK
     Route: 048
     Dates: start: 20010123, end: 201605
  3. ZARATOR [Suspect]
     Active Substance: ATORVASTATIN CALCIUM
     Indication: MYOCARDIAL INFARCTION

REACTIONS (7)
  - Myositis [Recovering/Resolving]
  - Gait inability [Recovered/Resolved]
  - Muscular weakness [Recovering/Resolving]
  - Blood creatine phosphokinase increased [Recovering/Resolving]
  - Myoglobinaemia [Recovering/Resolving]
  - Myalgia [Unknown]
  - Dysstasia [Recovered/Resolved]

NARRATIVE: CASE EVENT DATE: 201605
